FAERS Safety Report 5845978-4 (Version None)
Quarter: 2008Q3

REPORT INFORMATION
  Report Type: 
  Country: None (occurrence: None)
  Receive Date: 20080814
  Receipt Date: 20080807
  Transmission Date: 20090109
  Serious: Yes (Other)
  Sender: FDA-Public Use
  Company Number: US-PFIZER INC-2008065665

PATIENT
  Sex: Male
  Weight: 73 kg

DRUGS (18)
  1. MARAVIROC [Suspect]
     Indication: HIV INFECTION
     Route: 048
  2. ETRAVIRINE [Concomitant]
     Indication: HIV INFECTION
     Route: 048
  3. ISENTRESS [Concomitant]
     Indication: HIV INFECTION
     Route: 048
  4. FLONASE [Concomitant]
     Route: 048
  5. ALBUTEROL [Concomitant]
     Route: 048
     Dates: start: 20021201
  6. ALLEGRA [Concomitant]
     Route: 048
  7. BENADRYL [Concomitant]
     Route: 048
     Dates: start: 20040101
  8. MULTI-VITAMINS [Concomitant]
     Route: 048
     Dates: start: 20050101
  9. LEXAPRO [Concomitant]
     Route: 048
     Dates: start: 20050701
  10. GEMFIBROZIL [Concomitant]
     Route: 048
     Dates: start: 20040617
  11. CYANOCOBALAMIN [Concomitant]
     Route: 030
     Dates: start: 20050820
  12. ALLOPURINOL [Concomitant]
     Route: 048
     Dates: start: 20050501
  13. ASCORBIC ACID [Concomitant]
     Route: 048
     Dates: start: 20040101
  14. IRON [Concomitant]
     Route: 048
     Dates: start: 20040101
  15. TOPROL-XL [Concomitant]
     Route: 048
     Dates: start: 20040101
  16. OMEGA-3 MARINE TRIGLYCERIDES [Concomitant]
     Route: 048
     Dates: start: 20071110
  17. INSULIN [Concomitant]
     Route: 048
     Dates: start: 20080410
  18. NEXIUM [Concomitant]
     Route: 048
     Dates: start: 20080501

REACTIONS (1)
  - TONGUE NEOPLASM MALIGNANT STAGE UNSPECIFIED [None]
